FAERS Safety Report 8805647 (Version 1)
Quarter: 2012Q4

REPORT INFORMATION
  Report Type: Spontaneous
  Country: GB (occurrence: None)
  Receive Date: 20120917
  Receipt Date: 20120917
  Transmission Date: 20130627
  Serious: Yes (Hospitalization)
  Sender: FDA-Public Use
  Company Number: DSA_59440_2012

PATIENT
  Age: 91 Year
  Sex: Female

DRUGS (12)
  1. METRONIDAZOLE (METRONIDAZOLE) [Suspect]
     Dosage: (400 units (not specified) daily)
     Dates: start: 20110322, end: 20110329
  2. LANSOPRAZOLE [Suspect]
     Dosage: (30 units (not specified) daily)
  3. PHENOXYMETHYLPENICILLIN [Suspect]
     Dosage: (1 DF QID, [2000 (units not specified) daily])
     Dates: start: 20101011, end: 20101018
  4. FLUCLOXACILLIN [Suspect]
     Dosage: (1 DF QID, [2000 (units not specified) daily]), (1 DF QID, [2000 (units not specified) daily]), (DF)
     Dates: start: 2011, end: 20111018
  5. FLUCLOXACILLIN [Suspect]
     Dates: start: 20101221, end: 20101228
  6. FLUCLOXACILLIN [Suspect]
     Dates: start: 2010, end: 2010
  7. FUROSEMIDE [Concomitant]
  8. LISINOPRIL [Concomitant]
  9. ASPIRIN [Concomitant]
  10. DALTEPARIN [Concomitant]
  11. SPIRONOLACTONE [Concomitant]
  12. SAND K /00031402/ [Concomitant]

REACTIONS (1)
  - Clostridium difficile infection [None]
